FAERS Safety Report 8491933-8 (Version None)
Quarter: 2012Q3

REPORT INFORMATION
  Report Type: 
  Country: None (occurrence: None)
  Receive Date: 20120706
  Receipt Date: 20120409
  Transmission Date: 20120928
  Serious: No
  Sender: FDA-Public Use
  Company Number: US-GLAXOSMITHKLINE-A0972756A

PATIENT
  Age: 11 Year
  Sex: Male

DRUGS (5)
  1. ZOLOFT [Concomitant]
  2. MULTI-VITAMIN [Concomitant]
  3. ASCORBIC ACID [Concomitant]
  4. FLOVENT [Suspect]
     Indication: ASTHMA
     Dosage: 1PUFF SINGLE DOSE
     Route: 055
     Dates: start: 20120314, end: 20120314
  5. VITAMIN D [Concomitant]

REACTIONS (2)
  - PANIC ATTACK [None]
  - HEART RATE INCREASED [None]
